FAERS Safety Report 5160535-3 (Version None)
Quarter: 2006Q4

REPORT INFORMATION
  Report Type: 
  Country: None (occurrence: None)
  Receive Date: 20061120
  Receipt Date: 20061106
  Transmission Date: 20070319
  Serious: Yes (Other)
  Sender: FDA-Public Use
  Company Number: 232199

PATIENT
  Age: 39 Year
  Sex: Female

DRUGS (8)
  1. RITUXAN [Suspect]
     Indication: RHEUMATOID ARTHRITIS
     Dosage: 1000 MG, Q2W, INTRAVENOUS
     Route: 042
     Dates: start: 20060825
  2. VOLTAREN [Concomitant]
  3. LOTENSIN [Concomitant]
  4. HYDROCHLOROTHIAZIDE [Concomitant]
  5. POTASSIUM SUPPLEMENT (POTASSIUM NOS) [Concomitant]
  6. OXYCONTIN [Concomitant]
  7. VICODIN [Concomitant]
  8. ACYCLOVIR [Concomitant]

REACTIONS (2)
  - HERPES VIRUS INFECTION [None]
  - PANCREATITIS [None]
